FAERS Safety Report 18349212 (Version 1)
Quarter: 2020Q4

REPORT INFORMATION
  Report Type: Spontaneous
  Country: US (occurrence: US)
  Receive Date: 20201006
  Receipt Date: 20201006
  Transmission Date: 20210114
  Serious: No
  Sender: FDA-Public Use
  Company Number: US-BAUSCH-BL-2020-027424

PATIENT
  Sex: Female

DRUGS (1)
  1. TRULANCE [Suspect]
     Active Substance: PLECANATIDE
     Indication: CONSTIPATION
     Dosage: STARTED APPROXIMATELY 9 MONTHS AGO SOMETIME IN 2020
     Route: 048
     Dates: start: 2020, end: 20200921

REACTIONS (4)
  - Product prescribing error [Unknown]
  - Therapy interrupted [Unknown]
  - Product supply issue [Unknown]
  - Insurance issue [Unknown]

NARRATIVE: CASE EVENT DATE: 2020
